FAERS Safety Report 11012296 (Version 1)
Quarter: 2015Q2

REPORT INFORMATION
  Report Type: Spontaneous
  Country: US (occurrence: None)
  Receive Date: 20150410
  Receipt Date: 20150410
  Transmission Date: 20150821
  Serious: Yes (Other)
  Sender: FDA-Public Use
  Company Number: None

PATIENT
  Age: 61 Year
  Sex: Male

DRUGS (1)
  1. RIBASPHERE [Suspect]
     Active Substance: RIBAVIRIN
     Indication: PRODUCT USED FOR UNKNOWN INDICATION
     Dosage: ORAL?200?ORAL?3BID?
     Route: 048
     Dates: start: 20150317

REACTIONS (2)
  - Insomnia [None]
  - Product dosage form issue [None]

NARRATIVE: CASE EVENT DATE: 20150408
